FAERS Safety Report 25119961 (Version 1)
Quarter: 2025Q1

REPORT INFORMATION
  Report Type: Spontaneous
  Country: US (occurrence: US)
  Receive Date: 20250325
  Receipt Date: 20250325
  Transmission Date: 20250409
  Serious: Yes (Other)
  Sender: ALCON
  Company Number: US-ALCON LABORATORIES-ALC2025US001616

PATIENT
  Age: 72 Year
  Sex: Female

DRUGS (1)
  1. SYSTANE COMPLETE PF [Suspect]
     Active Substance: PROPYLENE GLYCOL
     Indication: Product used for unknown indication
     Route: 047

REACTIONS (2)
  - Product contamination microbial [Unknown]
  - Eye pain [Recovered/Resolved]
